FAERS Safety Report 5356124-8 (Version None)
Quarter: 2007Q2

REPORT INFORMATION
  Report Type: 
  Country: None (occurrence: None)
  Receive Date: 20070613
  Receipt Date: 20070605
  Transmission Date: 20071010
  Serious: Yes (Other)
  Sender: FDA-Public Use
  Company Number: US-AMGEN-US227693

PATIENT
  Sex: Female

DRUGS (7)
  1. ARANESP [Suspect]
     Indication: MYELODYSPLASTIC SYNDROME
     Route: 058
     Dates: start: 20070101
  2. PROPRANOLOL [Concomitant]
  3. LASIX [Concomitant]
  4. ZESTRIL [Concomitant]
  5. K-DUR 10 [Concomitant]
  6. SYNTHROID [Concomitant]
  7. INSULIN [Concomitant]

REACTIONS (2)
  - CONTUSION [None]
  - PLATELET COUNT DECREASED [None]
